FAERS Safety Report 10907165 (Version 1)
Quarter: 2015Q1

REPORT INFORMATION
  Report Type: Spontaneous
  Country: US (occurrence: None)
  Receive Date: 20150309
  Receipt Date: 20150309
  Transmission Date: 20150721
  Serious: No
  Sender: FDA-Public Use
  Company Number: 1210513-2015-00047

PATIENT
  Age: 64 Year
  Sex: Female
  Weight: 61.24 kg

DRUGS (1)
  1. WALMART EQUATE ORASOL [Suspect]
     Active Substance: BENZOCAINE
     Indication: ANALGESIC THERAPY
     Dosage: ORAL 047
     Route: 048
     Dates: start: 20120228, end: 20120229

REACTIONS (1)
  - Dizziness [None]

NARRATIVE: CASE EVENT DATE: 20120228
